FAERS Safety Report 6405378-5 (Version None)
Quarter: 2009Q4

REPORT INFORMATION
  Report Type: 
  Country: None (occurrence: None)
  Receive Date: 20091016
  Receipt Date: 20091016
  Transmission Date: 20100525
  Serious: Yes (Life-Threatening, Hospitalization, Disabling, Other)
  Sender: FDA-Public Use
  Company Number: None

PATIENT
  Age: 46 Year
  Sex: Female
  Weight: 47.1741 kg

DRUGS (5)
  1. ZYPREXA [Suspect]
     Dates: start: 20050401
  2. ZYPREXA [Suspect]
     Dates: start: 20070105
  3. ZYPREXA [Suspect]
     Dates: start: 20080531
  4. ZYPREXA [Suspect]
     Dates: start: 20090122
  5. SEROQUEL [Suspect]

REACTIONS (3)
  - PHOTOPSIA [None]
  - VICTIM OF CRIME [None]
  - VISUAL IMPAIRMENT [None]
